FAERS Safety Report 8310596-5 (Version None)
Quarter: 2012Q2

REPORT INFORMATION
  Report Type: 
  Country: None (occurrence: None)
  Receive Date: 20120425
  Receipt Date: 20120425
  Transmission Date: 20120825
  Serious: No
  Sender: FDA-Public Use
  Company Number: None

PATIENT
  Sex: Female
  Weight: 69.4 kg

DRUGS (1)
  1. AZITHROMYCIN [Suspect]
     Indication: CHRONIC OBSTRUCTIVE PULMONARY DISEASE
     Dosage: 500MG
     Route: 041
     Dates: start: 20120423, end: 20120423

REACTIONS (3)
  - CHEST PAIN [None]
  - ABDOMINAL PAIN [None]
  - NAUSEA [None]
